FAERS Safety Report 8942809 (Version 1)
Quarter: 2012Q4

REPORT INFORMATION
  Report Type: Spontaneous
  Country: SA (occurrence: None)
  Receive Date: 20121123
  Receipt Date: 20121123
  Transmission Date: 20130627
  Serious: Yes (Other)
  Sender: FDA-Public Use
  Company Number: 2012P1065281

PATIENT
  Age: 33 Year
  Sex: Female

DRUGS (3)
  1. LEVETIRACETAM [Suspect]
     Indication: SEIZURES
  2. LAMOTRIGINE [Suspect]
     Indication: SEIZURES
  3. PHENYTOIN (NO PREF. NAME) [Suspect]
     Indication: SEIZURES

REACTIONS (4)
  - Angioedema [None]
  - Rash [None]
  - Rash maculo-papular [None]
  - Drug hypersensitivity [None]
